FAERS Safety Report 19825461 (Version 1)
Quarter: 2021Q3

REPORT INFORMATION
  Report Type: Spontaneous
  Country: CN (occurrence: CN)
  Receive Date: 20210914
  Receipt Date: 20210914
  Transmission Date: 20211014
  Serious: Yes (Hospitalization)
  Sender: FDA-Public Use
  Company Number: CN-NOVOPROD-844669

PATIENT
  Age: 30 Year
  Sex: Female
  Weight: 46 kg

DRUGS (8)
  1. NOVORAPID [Suspect]
     Active Substance: INSULIN ASPART
     Dosage: 39 IU, TID (12U?13U?14U BEFORE BREAKFAST, LUNCH AND SUPPER,)
     Route: 058
     Dates: start: 20210729
  2. INSULIN GLARGINE [Suspect]
     Active Substance: INSULIN GLARGINE
     Dosage: 18 IU, QD(BEFORE SLEEPING)
     Route: 058
     Dates: start: 202107
  3. NOVORAPID [Suspect]
     Active Substance: INSULIN ASPART
     Indication: HYPERGLYCAEMIA
     Dosage: 8 IU, TID
     Route: 058
     Dates: start: 20210720
  4. INSULIN GLARGINE [Suspect]
     Active Substance: INSULIN GLARGINE
     Indication: HYPERGLYCAEMIA
     Dosage: 14 IU, QD
     Route: 058
     Dates: start: 20210720
  5. NOVORAPID [Suspect]
     Active Substance: INSULIN ASPART
     Dosage: 12 IU, TID
     Route: 058
     Dates: start: 202107
  6. INSULIN GLARGINE [Suspect]
     Active Substance: INSULIN GLARGINE
     Dosage: 22 IU, QD(BEFORE SLEEPING)
     Route: 058
     Dates: start: 20210729
  7. NOVORAPID [Suspect]
     Active Substance: INSULIN ASPART
     Dosage: 14 IU, TID
     Route: 058
     Dates: start: 20210726
  8. INSULIN GLARGINE [Suspect]
     Active Substance: INSULIN GLARGINE
     Dosage: 20 IU, QD(BEFORE SLEEPING)
     Route: 058
     Dates: start: 20210726

REACTIONS (3)
  - Hypoglycaemia [Recovered/Resolved]
  - Dizziness [Recovered/Resolved]
  - Palpitations [Recovered/Resolved]

NARRATIVE: CASE EVENT DATE: 20210725
